FAERS Safety Report 20124822 (Version 2)
Quarter: 2021Q4

REPORT INFORMATION
  Report Type: Report from Study
  Country: DE (occurrence: DE)
  Receive Date: 20211129
  Receipt Date: 20211202
  Transmission Date: 20220303
  Serious: Yes (Other)
  Sender: FDA-Public Use
  Company Number: DE-AMGEN-DEUNI2021141241

PATIENT
  Age: 68 Year
  Sex: Female

DRUGS (14)
  1. DEXAMETHASONE [Suspect]
     Active Substance: DEXAMETHASONE
     Indication: Plasma cell myeloma
     Dosage: 20 MILLIGRAM
     Route: 065
     Dates: start: 20210112, end: 20210429
  2. DARATUMUMAB [Suspect]
     Active Substance: DARATUMUMAB
     Indication: Plasma cell myeloma
     Dosage: 1088 MILLIGRAM
     Route: 065
     Dates: start: 20210119, end: 20210302
  3. DARATUMUMAB [Suspect]
     Active Substance: DARATUMUMAB
     Dosage: 1088 MILLIGRAM
     Route: 065
     Dates: start: 20210302
  4. DARATUMUMAB [Suspect]
     Active Substance: DARATUMUMAB
     Dosage: 1040 MILLIGRAM
     Route: 065
     Dates: start: 20210216
  5. KYPROLIS [Suspect]
     Active Substance: CARFILZOMIB
     Indication: Plasma cell myeloma
     Dosage: 100 MILLIGRAM
     Route: 065
     Dates: start: 20210112, end: 20210126
  6. KYPROLIS [Suspect]
     Active Substance: CARFILZOMIB
     Dosage: 81 MILLIGRAM/ START DATE: 27-JAN-2021
     Route: 065
     Dates: end: 20210216
  7. KYPROLIS [Suspect]
     Active Substance: CARFILZOMIB
     Dosage: 36 MILLIGRAM
     Route: 065
  8. VITAMIN B12                        /00056201/ [Concomitant]
     Indication: Product used for unknown indication
     Dosage: 1000 IU INTERNATIONAL UNIT(S), QMO
     Route: 042
     Dates: start: 20180821
  9. AKYNZEO [Concomitant]
     Active Substance: NETUPITANT\PALONOSETRON HYDROCHLORIDE
     Dosage: 9999 MILLIGRAM, CYCLICAL
     Route: 048
     Dates: start: 20180806, end: 20181012
  10. LIPEGFILGRASTIM [Concomitant]
     Active Substance: LIPEGFILGRASTIM
     Indication: Product used for unknown indication
     Dosage: 6 MILLIGRAM, CYCLICAL
     Route: 058
     Dates: start: 20180821, end: 20181012
  11. QUININE SULFATE [Concomitant]
     Active Substance: QUININE SULFATE
     Indication: Product used for unknown indication
     Dosage: 9999 MILLIGRAM, PRN (9999 MILLIGRAM, AS NECESSARY)
     Route: 048
     Dates: start: 20180918, end: 20181128
  12. MCP                                /00041901/ [Concomitant]
     Dosage: 10 MILLIGRAM, PRN (10 MILLIGRAM, AS NECESSARY)
     Route: 048
     Dates: start: 20180806, end: 20181012
  13. ALLOPURINOL [Concomitant]
     Active Substance: ALLOPURINOL
     Indication: Product used for unknown indication
     Dosage: 150 MILLIGRAM, QD
     Route: 048
     Dates: start: 20180806, end: 20180821
  14. PANTOPRAZOLE [Concomitant]
     Active Substance: PANTOPRAZOLE
     Indication: Product used for unknown indication
     Dosage: 40 MILLIGRAM, QD
     Route: 048
     Dates: start: 20180806

REACTIONS (1)
  - Thrombocytopenia [Not Recovered/Not Resolved]

NARRATIVE: CASE EVENT DATE: 20210126
